FAERS Safety Report 8310792-7 (Version None)
Quarter: 2012Q2

REPORT INFORMATION
  Report Type: 
  Country: None (occurrence: None)
  Receive Date: 20120423
  Receipt Date: 20120413
  Transmission Date: 20120825
  Serious: Yes (Life-Threatening, Hospitalization, Other)
  Sender: FDA-Public Use
  Company Number: DKLU1078009

PATIENT
  Age: 3 Year
  Sex: Female

DRUGS (1)
  1. SABRIL [Suspect]
     Indication: INFANTILE SPASMS
     Dosage: 1000 MG MILLIGRAM(S), 2 IN 1 D)
     Dates: start: 20100121

REACTIONS (9)
  - URINARY TRACT INFECTION [None]
  - ULTRASOUND SCAN ABNORMAL [None]
  - HEPATOMEGALY [None]
  - KIDNEY ENLARGEMENT [None]
  - RASH [None]
  - CARDIO-RESPIRATORY ARREST [None]
  - CONVULSION [None]
  - BLOOD POTASSIUM DECREASED [None]
  - INFECTION [None]
